FAERS Safety Report 12343219 (Version 1)
Quarter: 2016Q2

REPORT INFORMATION
  Report Type: Report from Study
  Country: US (occurrence: US)
  Receive Date: 20160506
  Receipt Date: 20160506
  Transmission Date: 20160815
  Serious: Yes (Other)
  Sender: FDA-Public Use
  Company Number: US-GILEAD-2016-0212356

PATIENT

DRUGS (2)
  1. SOFOSBUVIR [Suspect]
     Active Substance: SOFOSBUVIR
     Indication: PRODUCT USED FOR UNKNOWN INDICATION
     Dosage: UNK
     Route: 065
     Dates: start: 201407, end: 2014
  2. RIBAVIRIN. [Suspect]
     Active Substance: RIBAVIRIN
     Indication: PRODUCT USED FOR UNKNOWN INDICATION
     Dosage: UNK
     Route: 065
     Dates: start: 201407, end: 2014

REACTIONS (8)
  - Surgery [Unknown]
  - Irritability [Unknown]
  - Depression [Unknown]
  - Accident [Unknown]
  - Treatment failure [Unknown]
  - Feeling abnormal [Unknown]
  - Blood sodium decreased [Unknown]
  - Memory impairment [Recovering/Resolving]

NARRATIVE: CASE EVENT DATE: 2014
